FAERS Safety Report 5563284-2 (Version None)
Quarter: 2007Q4

REPORT INFORMATION
  Report Type: 
  Country: None (occurrence: None)
  Receive Date: 20071217
  Receipt Date: 20071205
  Transmission Date: 20080405
  Serious: Yes (Other)
  Sender: FDA-Public Use
  Company Number: US-MERCK-0712USA01576

PATIENT
  Age: 64 Year
  Sex: Male
  Weight: 118 kg

DRUGS (9)
  1. ZOCOR [Suspect]
     Route: 048
  2. MYCOPHENOLATE MOFETIL [Concomitant]
     Route: 065
  3. CYCLOSPORINE [Suspect]
     Route: 065
  4. PREDNISONE [Concomitant]
     Route: 065
  5. FUROSEMIDE [Suspect]
     Route: 065
  6. DILTIAZEM HYDROCHLORIDE [Suspect]
     Route: 065
  7. ASPIRIN [Concomitant]
     Route: 065
  8. INSULIN [Concomitant]
     Route: 065
  9. [THERAPY UNSPECIFIED] [Suspect]
     Route: 065

REACTIONS (2)
  - RENAL TUBULAR DISORDER [None]
  - RHABDOMYOLYSIS [None]
